FAERS Safety Report 4533565-X (Version None)
Quarter: 2004Q4

REPORT INFORMATION
  Report Type: 
  Country: None (occurrence: None)
  Receive Date: 20041210
  Receipt Date: 20040826
  Transmission Date: 20050328
  Serious: Yes (Hospitalization)
  Sender: FDA-Public Use
  Company Number: A03200402963

PATIENT
  Sex: Female
  Weight: 89.3586 kg

DRUGS (2)
  1. ELOXATIN [Suspect]
     Indication: COLON CANCER
     Dosage: 100MG/M2 OTHER INTRAVENOUS NOS
     Route: 042
     Dates: start: 20040804, end: 20040804
  2. FLUOROURACIL [Suspect]
     Indication: COLON CANCER
     Dosage: 200MG/M2/OTHER INTRAVENOUS NOS
     Route: 042
     Dates: start: 20040804, end: 20040804

REACTIONS (1)
  - CHEST PAIN [None]
